FAERS Safety Report 8405928-3 (Version None)
Quarter: 2012Q2

REPORT INFORMATION
  Report Type: 
  Country: None (occurrence: None)
  Receive Date: 20120529
  Receipt Date: 20011019
  Transmission Date: 20120825
  Serious: Yes (Death)
  Sender: FDA-Public Use
  Company Number: 02100-JPN-01-0096

PATIENT
  Age: 91 Year
  Sex: Female

DRUGS (1)
  1. PLETAL [Suspect]
     Indication: ARTERIAL OCCLUSIVE DISEASE
     Dosage: 100 MG, BID, ORAL
     Route: 048
     Dates: start: 20010904, end: 20010924

REACTIONS (6)
  - ANAEMIA [None]
  - GASTROINTESTINAL ANGIODYSPLASIA HAEMORRHAGIC [None]
  - ACUTE RESPIRATORY DISTRESS SYNDROME [None]
  - GASTRIC HAEMORRHAGE [None]
  - PALLOR [None]
  - SHOCK HAEMORRHAGIC [None]
